FAERS Safety Report 4426143-4 (Version None)
Quarter: 2004Q3

REPORT INFORMATION
  Report Type: 
  Country: None (occurrence: None)
  Receive Date: 20040811
  Receipt Date: 20040728
  Transmission Date: 20050211
  Serious: Yes (Hospitalization)
  Sender: FDA-Public Use
  Company Number: CERZ-10625

PATIENT
  Age: 80 Year
  Sex: Male
  Weight: 76.4311 kg

DRUGS (10)
  1. CEREZYME [Suspect]
     Indication: GAUCHER'S DISEASE
     Dosage: 4800 UNITS Q2WKS IV
     Route: 042
     Dates: start: 20001001
  2. VERAPAMIL [Concomitant]
  3. CARDURA [Concomitant]
  4. ASPIRIN [Concomitant]
  5. ZOMETA [Concomitant]
  6. ZOLOFT [Concomitant]
  7. XANAX [Concomitant]
  8. COMPAZINE [Concomitant]
  9. VITAMIN E [Concomitant]
  10. MULTI-VITAMIN [Concomitant]

REACTIONS (4)
  - DEEP VEIN THROMBOSIS [None]
  - INTERNATIONAL NORMALISED RATIO INCREASED [None]
  - PROTHROMBIN TIME PROLONGED [None]
  - RENAL FAILURE [None]
